FAERS Safety Report 9454383 (Version 1)
Quarter: 2013Q3

REPORT INFORMATION
  Report Type: Spontaneous
  Country: BR (occurrence: BR)
  Receive Date: 20130812
  Receipt Date: 20130812
  Transmission Date: 20140515
  Serious: Yes (Death)
  Sender: FDA-Public Use
  Company Number: BR-ELI_LILLY_AND_COMPANY-BR201308001387

PATIENT
  Age: 67 Year
  Sex: Male
  Weight: 68 kg

DRUGS (2)
  1. EFFIENT [Suspect]
     Indication: PLATELET AGGREGATION INHIBITION
     Dosage: 5 MG, UNK
     Route: 048
     Dates: start: 201306
  2. GLIMEPIRIDE W/METFORMIN [Concomitant]
     Dosage: UNKNOWN
     Route: 065

REACTIONS (1)
  - Death [Fatal]
